FAERS Safety Report 10553533 (Version 1)
Quarter: 2014Q4

REPORT INFORMATION
  Report Type: Spontaneous
  Country: RU (occurrence: None)
  Receive Date: 20141028
  Receipt Date: 20141028
  Transmission Date: 20150529
  Serious: Yes (Other)
  Sender: FDA-Public Use
  Company Number: B0969432A

PATIENT
  Sex: Male

DRUGS (2)
  1. KIVEXA [Suspect]
     Active Substance: ABACAVIR SULFATE\LAMIVUDINE
     Indication: HIV INFECTION
     Dates: start: 201310
  2. KALETRA [Suspect]
     Active Substance: LOPINAVIR\RITONAVIR
     Indication: HIV INFECTION
     Dates: start: 201310

REACTIONS (23)
  - Ocular hyperaemia [None]
  - Hepatomegaly [None]
  - Meningitis [None]
  - Aspartate aminotransferase increased [None]
  - Laboratory test abnormal [None]
  - Encephalitis [None]
  - Fatigue [None]
  - Eye pain [None]
  - Cholestasis [None]
  - Gallbladder polyp [None]
  - Biliary tract disorder [None]
  - Diarrhoea [None]
  - Alanine aminotransferase increased [None]
  - Blood bilirubin increased [None]
  - Asthenia [None]
  - Infection [None]
  - Liver disorder [None]
  - Ill-defined disorder [None]
  - Blood cholesterol increased [None]
  - Hepatic pain [None]
  - Headache [None]
  - Fat tissue increased [None]
  - Somnolence [None]
